FAERS Safety Report 6231290-0 (Version None)
Quarter: 2009Q2

REPORT INFORMATION
  Report Type: 
  Country: None (occurrence: None)
  Receive Date: 20090616
  Receipt Date: 20090609
  Transmission Date: 20091009
  Serious: Yes (Life-Threatening)
  Sender: FDA-Public Use
  Company Number: CH-AVENTIS-200911537GDDC

PATIENT
  Age: 50 Year
  Sex: Male

DRUGS (10)
  1. TAXOTERE [Suspect]
     Route: 042
     Dates: start: 20081224, end: 20081224
  2. CISPLATIN [Suspect]
     Route: 042
     Dates: start: 20081224, end: 20081224
  3. CETUXIMAB [Suspect]
     Dosage: DOSE: 250 MG  (400 MG INITIAL)
     Route: 042
     Dates: start: 20081224, end: 20081224
  4. RADIATION THERAPY [Suspect]
     Dosage: DOSE: UNK
     Dates: start: 20081126, end: 20081231
  5. CONCORDIN [Concomitant]
     Route: 048
     Dates: start: 20081126
  6. NEXIUM [Concomitant]
     Route: 048
     Dates: start: 20081126
  7. MAGNESIOCARD                       /00669702/ [Concomitant]
     Dosage: DOSE QUANTITY: 5; DOSE UNIT: MILLIMOLE PER LITRE
     Route: 048
     Dates: start: 20081126
  8. FRAXIFORTE [Concomitant]
     Dosage: DOSE QUANTITY: 0.8
     Route: 058
  9. AMLODIPINE [Concomitant]
     Dates: start: 20090311
  10. PRIMPERAN                          /00041901/ [Concomitant]
     Route: 048

REACTIONS (1)
  - FAILURE TO ANASTOMOSE [None]
